FAERS Safety Report 8593059-1 (Version None)
Quarter: 2012Q3

REPORT INFORMATION
  Report Type: 
  Country: None (occurrence: None)
  Receive Date: 20120814
  Receipt Date: 20120518
  Transmission Date: 20120928
  Serious: Yes (Hospitalization)
  Sender: FDA-Public Use
  Company Number: JP-GLAXOSMITHKLINE-B0802967A

PATIENT
  Sex: Female

DRUGS (2)
  1. DICLOFENAC SODIUM [Concomitant]
     Indication: ANALGESIC THERAPY
     Dosage: 75MG PER DAY
     Route: 048
     Dates: start: 20120515
  2. VALTREX [Suspect]
     Indication: HERPES ZOSTER
     Dosage: 3000MG PER DAY
     Route: 048
     Dates: start: 20120515, end: 20120516

REACTIONS (8)
  - THROMBOSIS IN DEVICE [None]
  - NERVOUS SYSTEM DISORDER [None]
  - SPEECH DISORDER [None]
  - BLOOD UREA INCREASED [None]
  - OVERDOSE [None]
  - RENAL FAILURE ACUTE [None]
  - VOMITING [None]
  - BLOOD CREATININE INCREASED [None]
